FAERS Safety Report 12192379 (Version 1)
Quarter: 2016Q1

REPORT INFORMATION
  Report Type: Spontaneous
  Country: CH (occurrence: CH)
  Receive Date: 20160318
  Receipt Date: 20160318
  Transmission Date: 20160526
  Serious: Yes (Hospitalization)
  Sender: FDA-Public Use
  Company Number: CH-MYLANLABS-2016M1011668

PATIENT

DRUGS (9)
  1. METHYLTESTOSTERONE [Suspect]
     Active Substance: METHYLTESTOSTERONE
     Indication: MUSCLE BUILDING THERAPY
     Route: 048
  2. LEVOTHYROXINE. [Suspect]
     Active Substance: LEVOTHYROXINE
     Indication: MUSCLE BUILDING THERAPY
     Route: 048
  3. LIOTHYRONINE [Suspect]
     Active Substance: LIOTHYRONINE
     Indication: MUSCLE BUILDING THERAPY
     Route: 048
  4. ALDACTONE [Suspect]
     Active Substance: SPIRONOLACTONE
     Indication: MUSCLE BUILDING THERAPY
     Route: 048
  5. STANOZOLOL [Suspect]
     Active Substance: STANOZOLOL
     Indication: MUSCLE BUILDING THERAPY
     Route: 048
  6. CLENBUTEROL [Suspect]
     Active Substance: CLENBUTEROL
     Indication: MUSCLE BUILDING THERAPY
     Route: 048
  7. MECASERMIN [Suspect]
     Active Substance: MECASERMIN
     Indication: MUSCLE BUILDING THERAPY
     Route: 048
  8. TORASEMIDE [Suspect]
     Active Substance: TORSEMIDE
     Indication: MUSCLE BUILDING THERAPY
     Route: 048
  9. ANASTROZOLE. [Suspect]
     Active Substance: ANASTROZOLE
     Indication: MUSCLE BUILDING THERAPY
     Route: 048

REACTIONS (3)
  - Acute respiratory distress syndrome [Recovering/Resolving]
  - Pneumonia [Recovering/Resolving]
  - Rhinovirus infection [Recovering/Resolving]
